FAERS Safety Report 25094505 (Version 1)
Quarter: 2025Q1

REPORT INFORMATION
  Report Type: Spontaneous
  Country: CN (occurrence: CN)
  Receive Date: 20250319
  Receipt Date: 20250319
  Transmission Date: 20250408
  Serious: Yes (Other)
  Sender: BAYER HEALTHCARE PHARMACEUTICALS INC.
  Company Number: CN-BAYER-2025A037054

PATIENT
  Age: 39 Year
  Sex: Male

DRUGS (2)
  1. MOXIFLOXACIN [Suspect]
     Active Substance: MOXIFLOXACIN
     Indication: Pneumonia chlamydial
     Dosage: 0.4 G, QD
     Route: 042
     Dates: start: 20231222, end: 20231226
  2. DOXYCYCLINE [Concomitant]
     Active Substance: DOXYCYCLINE
     Indication: Pneumonia chlamydial
     Dosage: 0.1 G, BID
     Route: 042
     Dates: start: 20231222, end: 20231226

REACTIONS (2)
  - Pathogen resistance [None]
  - Drug ineffective [None]

NARRATIVE: CASE EVENT DATE: 20231201
